FAERS Safety Report 10647148 (Version 1)
Quarter: 2014Q4

REPORT INFORMATION
  Report Type: Spontaneous
  Country: US (occurrence: US)
  Receive Date: 20141211
  Receipt Date: 20141211
  Transmission Date: 20150529
  Serious: No
  Sender: FDA-Public Use
  Company Number: US-INCYTE CORPORATION-2014IN002807

PATIENT
  Sex: Male
  Weight: 95 kg

DRUGS (9)
  1. JAKAFI [Suspect]
     Active Substance: RUXOLITINIB
     Indication: MYELOFIBROSIS
     Dosage: 20 MG, BID
     Route: 048
     Dates: start: 20140825
  2. CARVEDILOL. [Concomitant]
     Active Substance: CARVEDILOL
  3. IRON [Concomitant]
     Active Substance: IRON
  4. DOCUSATE [Concomitant]
     Active Substance: DOCUSATE
  5. CRESTOR [Concomitant]
     Active Substance: ROSUVASTATIN CALCIUM
  6. SIMETHICONE [Concomitant]
     Active Substance: DIMETHICONE\SILICON DIOXIDE\SIMETHICONE
  7. OMEPRAZOLE. [Concomitant]
     Active Substance: OMEPRAZOLE
  8. MIRALAX [Concomitant]
     Active Substance: POLYETHYLENE GLYCOL 3350
  9. VITAMIN B [Concomitant]
     Active Substance: VITAMIN B

REACTIONS (1)
  - Diarrhoea [Not Recovered/Not Resolved]
